FAERS Safety Report 4570295-2 (Version None)
Quarter: 2005Q1

REPORT INFORMATION
  Report Type: 
  Country: None (occurrence: None)
  Receive Date: 20050202
  Receipt Date: 20050120
  Transmission Date: 20050727
  Serious: Yes (Hospitalization, Other)
  Sender: FDA-Public Use
  Company Number: 2005016817

PATIENT
  Age: 57 Year
  Sex: Female

DRUGS (3)
  1. FLUCONAZOLE [Suspect]
     Dates: start: 20040527, end: 20040601
  2. MOXIFLOXACIN HCL [Suspect]
     Indication: PNEUMONIA
     Dosage: ORAL
     Route: 048
     Dates: start: 20040525, end: 20040609
  3. CEFTRIAXONE [Suspect]
     Dates: start: 20040525, end: 20040531

REACTIONS (5)
  - ANTI-PLATELET ANTIBODY POSITIVE [None]
  - ANTINEUTROPHIL CYTOPLASMIC ANTIBODY POSITIVE [None]
  - BLOOD CREATININE INCREASED [None]
  - MICROANGIOPATHIC HAEMOLYTIC ANAEMIA [None]
  - THROMBOCYTOPENIA [None]
